FAERS Safety Report 21236953 (Version 1)
Quarter: 2022Q3

REPORT INFORMATION
  Report Type: Spontaneous
  Country: CO (occurrence: CO)
  Receive Date: 20220822
  Receipt Date: 20220822
  Transmission Date: 20221027
  Serious: Yes (Hospitalization)
  Sender: FDA-Public Use
  Company Number: CO-NOVOPROD-948957

PATIENT
  Age: 24 Year
  Sex: Male

DRUGS (1)
  1. SAXENDA [Suspect]
     Active Substance: LIRAGLUTIDE
     Indication: Product used for unknown indication
     Dosage: 3.00 MG, QD
     Dates: start: 20220410, end: 20220801

REACTIONS (2)
  - Polyneuropathy [Unknown]
  - Guillain-Barre syndrome [Unknown]
